FAERS Safety Report 9256650 (Version 1)
Quarter: 2013Q2

REPORT INFORMATION
  Report Type: Spontaneous
  Country: US (occurrence: US)
  Receive Date: 20130426
  Receipt Date: 20130426
  Transmission Date: 20140414
  Serious: No
  Sender: FDA-Public Use
  Company Number: US-BIOGENIDEC-2013BI037954

PATIENT
  Sex: Female

DRUGS (4)
  1. TYSABRI [Suspect]
     Indication: MULTIPLE SCLEROSIS
     Route: 042
     Dates: start: 20090611, end: 2009
  2. TYSABRI [Suspect]
     Indication: MULTIPLE SCLEROSIS
     Route: 042
     Dates: start: 20110526
  3. AVONEX [Concomitant]
     Indication: MULTIPLE SCLEROSIS
     Route: 030
     Dates: start: 20101116
  4. CHOLESTEROL MEDICATION (NOS) [Concomitant]
     Indication: BLOOD CHOLESTEROL INCREASED
     Dates: start: 2009

REACTIONS (4)
  - Blood cholesterol increased [Not Recovered/Not Resolved]
  - Decreased immune responsiveness [Recovered/Resolved]
  - Memory impairment [Unknown]
  - Nasopharyngitis [Unknown]
